FAERS Safety Report 7436291-2 (Version None)
Quarter: 2011Q2

REPORT INFORMATION
  Report Type: 
  Country: None (occurrence: None)
  Receive Date: 20110426
  Receipt Date: 20110418
  Transmission Date: 20111010
  Serious: Yes (Hospitalization)
  Sender: FDA-Public Use
  Company Number: RS-AMGEN-SRBSP2011018236

PATIENT
  Age: 43 Year
  Sex: Female
  Weight: 69 kg

DRUGS (2)
  1. ENBREL [Suspect]
     Indication: RHEUMATOID ARTHRITIS
     Dosage: 50 MG, WEEKLY
     Route: 058
     Dates: start: 20080520, end: 20110316
  2. METHOTREXATE SODIUM [Concomitant]
     Indication: RHEUMATOID ARTHRITIS
     Dosage: 5-10MG, WEEKLY
     Route: 048
     Dates: start: 20070101, end: 20110202

REACTIONS (4)
  - BODY TEMPERATURE INCREASED [None]
  - JOINT SWELLING [None]
  - SEPTIC ARTHRITIS STAPHYLOCOCCAL [None]
  - OEDEMA PERIPHERAL [None]
